FAERS Safety Report 23918600 (Version 1)
Quarter: 2024Q2

REPORT INFORMATION
  Report Type: Spontaneous
  Country: CA (occurrence: CA)
  Receive Date: 20240530
  Receipt Date: 20240530
  Transmission Date: 20240716
  Serious: Yes (Other)
  Sender: FDA-Public Use
  Company Number: CA-GLAXOSMITHKLINE-CA2024AMR063865

PATIENT
  Sex: Female

DRUGS (2)
  1. AMBRISENTAN [Suspect]
     Active Substance: AMBRISENTAN
     Indication: Pulmonary hypertension
     Dosage: 5 MG, QD
     Route: 048
     Dates: start: 20240515
  2. ADCIRCA [Concomitant]
     Active Substance: TADALAFIL

REACTIONS (2)
  - Central obesity [Recovering/Resolving]
  - Dyspnoea [Not Recovered/Not Resolved]
